FAERS Safety Report 5285660-8 (Version None)
Quarter: 2007Q1

REPORT INFORMATION
  Report Type: 
  Country: None (occurrence: None)
  Receive Date: 20070126
  Receipt Date: 20061128
  Transmission Date: 20070707
  Serious: No
  Sender: FDA-Public Use
  Company Number: 012497

PATIENT
  Age: 63 Year
  Sex: Male

DRUGS (2)
  1. PRIALT [Suspect]
     Indication: NEURALGIA
     Dosage: SEE IMAGE
     Route: 037
     Dates: start: 20060807
  2. SUBOXONE [Concomitant]

REACTIONS (4)
  - HALLUCINATION, GUSTATORY [None]
  - HALLUCINATIONS, MIXED [None]
  - ORAL SURGERY [None]
  - POSTOPERATIVE WOUND INFECTION [None]
